FAERS Safety Report 6177030-5 (Version None)
Quarter: 2009Q2

REPORT INFORMATION
  Report Type: 
  Country: None (occurrence: None)
  Receive Date: 20090501
  Receipt Date: 20090311
  Transmission Date: 20091009
  Serious: Yes (Hospitalization)
  Sender: FDA-Public Use
  Company Number: US-ALEXION-A200900181

PATIENT
  Sex: Female

DRUGS (8)
  1. SOLIRIS [Suspect]
     Indication: PAROXYSMAL NOCTURNAL HAEMOGLOBINURIA
     Dosage: UNK
     Route: 042
  2. SOLIRIS [Suspect]
     Dosage: 600 MG, QWK X4WK
     Route: 042
     Dates: start: 20081015, end: 20081101
  3. SOLIRIS [Suspect]
     Dosage: 900 MG, Q2WK
  4. DILAUDID [Concomitant]
     Indication: PAIN
     Dosage: 4 MG, Q4-6HOURS PRN
     Route: 048
  5. DILAUDID [Concomitant]
     Indication: BACK PAIN
  6. DILAUDID [Concomitant]
     Indication: CHEST PAIN
  7. NITROGLYCERIN [Concomitant]
     Indication: CHEST PAIN
     Dosage: 0.2 MG, PRN
     Route: 060
  8. ZOFRAN [Concomitant]
     Indication: NAUSEA
     Dosage: 8 MG, Q8HOURS PRN
     Route: 048

REACTIONS (3)
  - BACK PAIN [None]
  - NAUSEA [None]
  - PRURITUS [None]
